FAERS Safety Report 24204831 (Version 1)
Quarter: 2024Q3

REPORT INFORMATION
  Report Type: Spontaneous
  Country: CA (occurrence: CA)
  Receive Date: 20240813
  Receipt Date: 20240813
  Transmission Date: 20241017
  Serious: Yes (Other)
  Sender: PFIZER
  Company Number: CA-PFIZER INC-202400234845

PATIENT
  Age: 38 Year
  Sex: Female

DRUGS (3)
  1. PROVERA [Suspect]
     Active Substance: MEDROXYPROGESTERONE ACETATE
     Indication: Infertility tests
     Dosage: 10 MG, 1X/DAY
     Route: 048
  2. ESTRACE [Suspect]
     Active Substance: ESTRADIOL
     Indication: Infertility tests
     Dosage: 2 MG, 2X/DAY
     Route: 048
  3. MINERALS\VITAMINS [Concomitant]
     Active Substance: MINERALS\VITAMINS

REACTIONS (5)
  - Cardiac flutter [Unknown]
  - Chest discomfort [Unknown]
  - Muscle spasms [Unknown]
  - Muscle tightness [Unknown]
  - Off label use [Unknown]
